FAERS Safety Report 23698981 (Version 2)
Quarter: 2024Q2

REPORT INFORMATION
  Report Type: Report from Study
  Country: JP (occurrence: JP)
  Receive Date: 20240402
  Receipt Date: 20240503
  Transmission Date: 20240715
  Serious: Yes (Death, Other)
  Sender: FDA-Public Use
  Company Number: JP-MSD-2403JPN003843J

PATIENT
  Age: 80 Year
  Sex: Female
  Weight: 43 kg

DRUGS (2)
  1. POSACONAZOLE [Suspect]
     Active Substance: POSACONAZOLE
     Indication: Antifungal prophylaxis
     Dosage: 300 MILLIGRAM, QD
     Route: 048
     Dates: start: 20230801, end: 20230815
  2. SITAFLOXACIN [Concomitant]
     Active Substance: SITAFLOXACIN
     Dosage: UNK
     Route: 048
     Dates: end: 20230814

REACTIONS (4)
  - Myelodysplastic syndrome [Fatal]
  - Infection [Fatal]
  - Dysphagia [Unknown]
  - Product use issue [Unknown]

NARRATIVE: CASE EVENT DATE: 20230801
